FAERS Safety Report 23601910 (Version 1)
Quarter: 2024Q1

REPORT INFORMATION
  Report Type: Spontaneous
  Country: US (occurrence: None)
  Receive Date: 20240306
  Receipt Date: 20240306
  Transmission Date: 20240409
  Serious: Yes (unspecified)
  Sender: FDA-Public Use
  Company Number: None

PATIENT
  Age: 48 Year
  Sex: Female
  Weight: 83.5 kg

DRUGS (12)
  1. SKYCLARYS [Suspect]
     Active Substance: OMAVELOXOLONE
     Indication: Friedreich^s ataxia
     Dosage: FREQUENCY : DAILY;?
     Route: 048
     Dates: start: 20230705, end: 20240122
  2. verapamil SR 120mg QD [Concomitant]
  3. metoprolol tartrate 37.5mg BID [Concomitant]
  4. omeprazole 40mg QD [Concomitant]
  5. baclofen 20mg BID [Concomitant]
  6. levothyroxine 175mcg QD [Concomitant]
  7. oxybutynin XL 10mg QD [Concomitant]
  8. clonazepam 0.5mg QHS PRN [Concomitant]
  9. ozempic 0.5mg QW [Concomitant]
  10. metformin 500mg ER QD [Concomitant]
  11. gabapentin 600mg QD [Concomitant]
  12. vibegron 75mg QD [Concomitant]

REACTIONS (7)
  - Muscle spasms [None]
  - Muscle spasms [None]
  - Back pain [None]
  - Arthralgia [None]
  - Fall [None]
  - Pain [None]
  - Drug interaction [None]

NARRATIVE: CASE EVENT DATE: 20230706
